FAERS Safety Report 4277225-1 (Version None)
Quarter: 2004Q1

REPORT INFORMATION
  Report Type: 
  Country: None (occurrence: None)
  Receive Date: 20040120
  Receipt Date: 20040109
  Transmission Date: 20041129
  Serious: Yes (Hospitalization)
  Sender: FDA-Public Use
  Company Number: JP-JNJFOC-20031201061

PATIENT
  Age: 65 Year
  Sex: Female

DRUGS (2)
  1. OFLOXACIN [Suspect]
     Indication: BACTERAEMIA
     Dosage: 200 MG, 1 IN 1 DAY, ORAL
     Route: 048
     Dates: start: 20030925, end: 20031007
  2. ROCEPHIN [Concomitant]

REACTIONS (18)
  - ANAEMIA [None]
  - AORTIC CALCIFICATION [None]
  - ATRIOVENTRICULAR BLOCK [None]
  - ATRIOVENTRICULAR BLOCK SECOND DEGREE [None]
  - BLOOD CREATININE INCREASED [None]
  - BLOOD THYROID STIMULATING HORMONE INCREASED [None]
  - BRADYCARDIA [None]
  - BUNDLE BRANCH BLOCK RIGHT [None]
  - CONVULSION [None]
  - DYSPNOEA [None]
  - ELECTROCARDIOGRAM QT PROLONGED [None]
  - OEDEMA PERIPHERAL [None]
  - PLATELET COUNT DECREASED [None]
  - RASH [None]
  - RENAL DISORDER [None]
  - SYNCOPE [None]
  - TORSADE DE POINTES [None]
  - TRI-IODOTHYRONINE DECREASED [None]
